FAERS Safety Report 9850245 (Version 2)
Quarter: 2014Q2

REPORT INFORMATION
  Report Type: Spontaneous
  Country: US (occurrence: US)
  Receive Date: 20140128
  Receipt Date: 20140417
  Transmission Date: 20141212
  Serious: Yes (Life-Threatening, Hospitalization, Disabling, Other)
  Sender: FDA-Public Use
  Company Number: US-GLAXOSMITHKLINE-A1057499A

PATIENT
  Age: 81 Year
  Sex: Female

DRUGS (4)
  1. ADVAIR [Suspect]
     Indication: BRONCHITIS
     Dosage: 1PUFF SINGLE DOSE
     Route: 055
     Dates: start: 20140118, end: 20140118
  2. PHENERGAN WITH CODEINE [Suspect]
     Indication: PRODUCT USED FOR UNKNOWN INDICATION
     Route: 065
     Dates: start: 201401
  3. TOPROL [Concomitant]
     Dosage: 25MGD PER DAY
  4. NORVASC [Concomitant]
     Dosage: 25MGD PER DAY

REACTIONS (11)
  - Delirium [Recovered/Resolved]
  - Gait disturbance [Recovered/Resolved]
  - Hallucination [Recovered/Resolved]
  - Confusional state [Recovered/Resolved]
  - Agitation [Recovered/Resolved]
  - Impaired reasoning [Recovered/Resolved]
  - Amnesia [Recovered/Resolved]
  - Urinary tract infection [Recovered/Resolved]
  - Basophil count increased [Recovered/Resolved]
  - Eosinophil count increased [Recovered/Resolved]
  - Fatigue [Recovered/Resolved]
